FAERS Safety Report 25082627 (Version 1)
Quarter: 2025Q1

REPORT INFORMATION
  Report Type: Spontaneous
  Country: US (occurrence: US)
  Receive Date: 20250317
  Receipt Date: 20250317
  Transmission Date: 20250409
  Serious: Yes (Other)
  Sender: CHATTEM
  Company Number: US-OPELLA-2025OHG006735

PATIENT
  Sex: Female

DRUGS (1)
  1. GOLD BOND ORIGINAL STRENGTH [Suspect]
     Active Substance: MENTHOL
     Indication: Product used for unknown indication

REACTIONS (2)
  - Sarcomatoid mesothelioma [Unknown]
  - Exposure to chemical pollution [Unknown]

NARRATIVE: CASE EVENT DATE: 20241023
